APPROVED DRUG PRODUCT: MYIDYL
Active Ingredient: TRIPROLIDINE HYDROCHLORIDE
Strength: 1.25MG/5ML
Dosage Form/Route: SYRUP;ORAL
Application: A087963 | Product #001
Applicant: USL PHARMA INC
Approved: Jan 18, 1983 | RLD: No | RS: No | Type: DISCN